FAERS Safety Report 25765169 (Version 1)
Quarter: 2025Q3

REPORT INFORMATION
  Report Type: Spontaneous
  Country: EU (occurrence: None)
  Receive Date: 20250905
  Receipt Date: 20250905
  Transmission Date: 20251020
  Serious: Yes (Death, Hospitalization)
  Sender: ENCUBE ETHICALS PVT. LTD.
  Company Number: EU-Encube-002223

PATIENT
  Age: 57 Year
  Sex: Male

DRUGS (6)
  1. FLUOROURACIL [Suspect]
     Active Substance: FLUOROURACIL
     Indication: Oesophageal carcinoma
     Dosage: ADMINISTERED OVER 5 CONSECUTIVE DAYS EVERY 3 WEEKS
  2. PANTOPRAZOLE [Concomitant]
     Active Substance: PANTOPRAZOLE
  3. METAMIZOLE [Concomitant]
     Active Substance: METAMIZOLE
  4. SITAGLIPTIN [Concomitant]
     Active Substance: SITAGLIPTIN
  5. DOCETAXEL [Concomitant]
     Active Substance: DOCETAXEL
  6. NIVOLUMAB [Concomitant]
     Active Substance: NIVOLUMAB

REACTIONS (5)
  - Arteriospasm coronary [Fatal]
  - Cardiogenic shock [Fatal]
  - Hypoxic-ischaemic encephalopathy [Fatal]
  - Off label use [Unknown]
  - Cardiotoxicity [Fatal]
